FAERS Safety Report 24683099 (Version 2)
Quarter: 2025Q3

REPORT INFORMATION
  Report Type: Spontaneous
  Country: US (occurrence: US)
  Receive Date: 20241201
  Receipt Date: 20250816
  Transmission Date: 20251020
  Serious: No
  Sender: ALEXION PHARMACEUTICALS
  Company Number: US-AstraZeneca-CH-00756225A

PATIENT
  Sex: Female
  Weight: 87.543 kg

DRUGS (1)
  1. BREZTRI [Suspect]
     Active Substance: BUDESONIDE\FORMOTEROL\GLYCOPYRROLATE
     Dates: start: 20241016, end: 202411

REACTIONS (3)
  - Headache [Unknown]
  - Hypertension [Unknown]
  - Heart rate increased [Unknown]
